FAERS Safety Report 25349403 (Version 1)
Quarter: 2025Q2

REPORT INFORMATION
  Report Type: Spontaneous
  Country: US (occurrence: US)
  Receive Date: 20250522
  Receipt Date: 20250522
  Transmission Date: 20250717
  Serious: No
  Sender: BRACCO
  Company Number: US-BRACCO-2024US06386

PATIENT
  Age: 90 Year
  Sex: Male

DRUGS (1)
  1. VARIBAR THIN LIQUID [Suspect]
     Active Substance: BARIUM SULFATE
     Indication: Barium swallow
     Route: 048
     Dates: start: 20241008, end: 20241008

REACTIONS (2)
  - Product quality issue [Unknown]
  - No adverse event [Unknown]

NARRATIVE: CASE EVENT DATE: 20241008
